FAERS Safety Report 9132474 (Version 1)
Quarter: 2013Q1

REPORT INFORMATION
  Report Type: Spontaneous
  Country: US (occurrence: US)
  Receive Date: 20130120
  Receipt Date: 20130120
  Transmission Date: 20140127
  Serious: No
  Sender: FDA-Public Use
  Company Number: US-ALLERGAN-1213137US

PATIENT
  Sex: Female

DRUGS (3)
  1. BOTOX COSMETIC [Suspect]
     Indication: SKIN WRINKLING
     Dosage: 25 UNITS, SINGLE
     Route: 030
     Dates: start: 20120917, end: 20120917
  2. EFFEXOR                            /01233801/ [Concomitant]
     Indication: HOT FLUSH
     Dosage: UNK
     Route: 048
  3. LIPIGAN [Concomitant]
     Indication: SUPPLEMENTATION THERAPY
     Dosage: UNK
     Route: 048

REACTIONS (2)
  - Injection site rash [Recovering/Resolving]
  - Injection site swelling [Recovering/Resolving]
